FAERS Safety Report 13619866 (Version 1)
Quarter: 2017Q2

REPORT INFORMATION
  Report Type: Spontaneous
  Country: US (occurrence: US)
  Receive Date: 20170606
  Receipt Date: 20170606
  Transmission Date: 20170830
  Serious: Yes (Other)
  Sender: FDA-Public Use
  Company Number: US-MYLANLABS-2017M1033450

PATIENT

DRUGS (3)
  1. GEMCITABINE [Suspect]
     Active Substance: GEMCITABINE\GEMCITABINE HYDROCHLORIDE
     Indication: PRODUCT USED FOR UNKNOWN INDICATION
     Dosage: UNK
  2. OXALIPLATIN. [Suspect]
     Active Substance: OXALIPLATIN
     Indication: PRODUCT USED FOR UNKNOWN INDICATION
     Dosage: UNK
  3. RUCAPARIB [Suspect]
     Active Substance: RUCAPARIB
     Indication: PANCREATIC CARCINOMA
     Dosage: 600 MG, BID
     Route: 048
     Dates: start: 20170401, end: 20170419

REACTIONS (7)
  - Abdominal pain lower [Unknown]
  - Constipation [Unknown]
  - Metastases to peritoneum [Unknown]
  - Blood glucose increased [Unknown]
  - Thyroid hormones decreased [Unknown]
  - Haemoglobin decreased [Not Recovered/Not Resolved]
  - Platelet count decreased [Not Recovered/Not Resolved]

NARRATIVE: CASE EVENT DATE: 201704
